FAERS Safety Report 10185060 (Version 2)
Quarter: 2014Q2

REPORT INFORMATION
  Report Type: Spontaneous
  Country: US (occurrence: US)
  Receive Date: 20140521
  Receipt Date: 20140521
  Transmission Date: 20141212
  Serious: Yes (Other)
  Sender: FDA-Public Use
  Company Number: US-ASTRAZENECA-2012SE05444

PATIENT
  Age: 66 Year
  Sex: Female
  Weight: 72.6 kg

DRUGS (7)
  1. NEXIUM [Suspect]
     Route: 048
  2. PRILOSEC [Suspect]
     Route: 048
  3. CRESTOR [Suspect]
     Indication: BLOOD CHOLESTEROL
     Route: 048
     Dates: start: 20140430, end: 20140510
  4. CRESTOR [Suspect]
     Indication: BLOOD CHOLESTEROL
     Route: 048
  5. LYNZESS [Concomitant]
     Indication: IRRITABLE BOWEL SYNDROME
     Route: 048
     Dates: start: 201404
  6. LYNZESS [Concomitant]
     Indication: CONSTIPATION
     Route: 048
     Dates: start: 201404
  7. COQ10 [Concomitant]
     Indication: CARDIAC DISORDER
     Route: 048

REACTIONS (8)
  - Hypersensitivity [Unknown]
  - Discomfort [Unknown]
  - Pain [Unknown]
  - Pain [Recovered/Resolved]
  - Gait disturbance [Recovered/Resolved]
  - Panic attack [Recovered/Resolved]
  - Off label use [Recovered/Resolved]
  - Drug ineffective [Unknown]
